FAERS Safety Report 15578370 (Version 1)
Quarter: 2018Q4

REPORT INFORMATION
  Report Type: Spontaneous
  Country: US (occurrence: US)
  Receive Date: 20181101
  Receipt Date: 20181101
  Transmission Date: 20190205
  Serious: Yes (Other)
  Sender: FDA-Public Use
  Company Number: None

PATIENT
  Age: 87 Year
  Sex: Male
  Weight: 58.5 kg

DRUGS (8)
  1. CARVEDILOL. [Concomitant]
     Active Substance: CARVEDILOL
  2. ALEVE [Concomitant]
     Active Substance: NAPROXEN SODIUM
  3. TRAMADOL. [Concomitant]
     Active Substance: TRAMADOL
  4. ASPIRIN. [Concomitant]
     Active Substance: ASPIRIN
  5. CASODEX [Concomitant]
     Active Substance: BICALUTAMIDE
  6. NILUTAMIDE. [Suspect]
     Active Substance: NILUTAMIDE
     Indication: PROSTATE CANCER
     Route: 048
     Dates: start: 20180808
  7. PANTOPRAZOLE [Concomitant]
     Active Substance: PANTOPRAZOLE
  8. CELEBREX [Concomitant]
     Active Substance: CELECOXIB

REACTIONS (1)
  - Blood pressure fluctuation [None]

NARRATIVE: CASE EVENT DATE: 20181101
